FAERS Safety Report 10395310 (Version 1)
Quarter: 2014Q1

REPORT INFORMATION
  Report Type: Spontaneous
  Country: US (occurrence: None)
  Receive Date: 20130606
  Receipt Date: 20130606
  Transmission Date: 20141002
  Serious: No
  Sender: FDA-Public Use
  Company Number: 2012PROUSA02213

PATIENT
  Age: 87 Year
  Sex: Male
  Weight: 77.1 kg

DRUGS (1)
  1. PROVENGE (SIPULEUCEL-T) SUSPENSION, 250ML [Suspect]
     Indication: PROSTATE CANCER METASTATIC
     Dosage: SINGLE
     Route: 042
     Dates: start: 20121001, end: 20121001

REACTIONS (3)
  - Dehydration [None]
  - Chills [None]
  - Dizziness [None]
